FAERS Safety Report 14481307 (Version 2)
Quarter: 2018Q1

REPORT INFORMATION
  Report Type: Spontaneous
  Country: GB (occurrence: GB)
  Receive Date: 20180202
  Receipt Date: 20180227
  Transmission Date: 20180509
  Serious: Yes (Other)
  Sender: FDA-Public Use
  Company Number: GB-MYLANLABS-2018M1008495

PATIENT
  Age: 53 Year
  Sex: Male

DRUGS (4)
  1. CLOZAPINE MYLAN [Suspect]
     Active Substance: CLOZAPINE
     Indication: MAJOR DEPRESSION
     Dosage: UNK
  2. CHLORPROMAZINE. [Concomitant]
     Active Substance: CHLORPROMAZINE
     Indication: MAJOR DEPRESSION
  3. CARBAMAZEPINE. [Concomitant]
     Active Substance: CARBAMAZEPINE
     Indication: MAJOR DEPRESSION
     Dosage: UNK
  4. LITHIUM. [Concomitant]
     Active Substance: LITHIUM
     Indication: MAJOR DEPRESSION
     Dosage: UNK

REACTIONS (5)
  - Product use in unapproved indication [Unknown]
  - Oral pain [Unknown]
  - Neutropenia [Unknown]
  - Headache [Unknown]
  - Nausea [Unknown]
